FAERS Safety Report 11238615 (Version 1)
Quarter: 2015Q3

REPORT INFORMATION
  Report Type: Report from Study
  Country: GB (occurrence: GB)
  Receive Date: 20150706
  Receipt Date: 20150706
  Transmission Date: 20151125
  Serious: Yes (Death, Other)
  Sender: FDA-Public Use
  Company Number: GB-ROCHE-1598599

PATIENT

DRUGS (5)
  1. ASPIRIN. [Concomitant]
     Active Substance: ASPIRIN
     Indication: ACUTE MYOCARDIAL INFARCTION
     Dosage: CHEWABLE OR SOLUBLE
     Route: 048
  2. ALTEPLASE [Suspect]
     Active Substance: ALTEPLASE
     Dosage: IN 1 HOUR
     Route: 041
  3. ALTEPLASE [Suspect]
     Active Substance: ALTEPLASE
     Dosage: IN EACH OF THE NEXT 2 H)
     Route: 041
  4. ASPIRIN. [Concomitant]
     Active Substance: ASPIRIN
     Dosage: 75-360 MG DAILY
     Route: 048
  5. ALTEPLASE [Suspect]
     Active Substance: ALTEPLASE
     Indication: ACUTE MYOCARDIAL INFARCTION
     Route: 040

REACTIONS (7)
  - Haemorrhagic stroke [Fatal]
  - Aortic dissection [Fatal]
  - Cardiac arrest [Fatal]
  - Pulseless electrical activity [Fatal]
  - Cerebrovascular accident [Fatal]
  - Haemorrhage [Unknown]
  - Myocardial rupture [Fatal]
